FAERS Safety Report 4760107-6 (Version None)
Quarter: 2005Q3

REPORT INFORMATION
  Report Type: 
  Country: None (occurrence: None)
  Receive Date: 20050902
  Receipt Date: 20050427
  Transmission Date: 20060218
  Serious: No
  Sender: FDA-Public Use
  Company Number: US-GLAXOSMITHKLINE-A0556052A

PATIENT
  Age: 49 Year
  Sex: Female

DRUGS (3)
  1. REQUIP [Suspect]
     Indication: PARKINSON'S DISEASE
     Dosage: .25MG THREE TIMES PER DAY
     Route: 048
     Dates: start: 20050410
  2. AMITRIPTYLINE HCL [Concomitant]
  3. PROVIGIL [Concomitant]

REACTIONS (1)
  - MUSCULAR WEAKNESS [None]
